FAERS Safety Report 8562307-6 (Version None)
Quarter: 2012Q3

REPORT INFORMATION
  Report Type: 
  Country: None (occurrence: None)
  Receive Date: 20120802
  Receipt Date: 20120712
  Transmission Date: 20120928
  Serious: No
  Sender: FDA-Public Use
  Company Number: US-AMGEN-USASP2012043560

PATIENT
  Age: 58 Year
  Sex: Female

DRUGS (2)
  1. METHOTREXATE [Concomitant]
     Dosage: 1 MG, UNK
     Dates: start: 20110701
  2. ENBREL [Suspect]
     Indication: RHEUMATOID ARTHRITIS
     Dosage: 50 MG, QWK
     Dates: start: 20120214

REACTIONS (6)
  - RASH ERYTHEMATOUS [None]
  - DRUG EFFECT DECREASED [None]
  - NEUROPATHY PERIPHERAL [None]
  - URTICARIA [None]
  - PHOTOSENSITIVITY REACTION [None]
  - MALAISE [None]
